FAERS Safety Report 12077341 (Version 1)
Quarter: 2016Q1

REPORT INFORMATION
  Report Type: Spontaneous
  Country: US (occurrence: US)
  Receive Date: 20160215
  Receipt Date: 20160215
  Transmission Date: 20160526
  Serious: No
  Sender: FDA-Public Use
  Company Number: US-BAYER-2016-025897

PATIENT
  Sex: Female

DRUGS (2)
  1. CLARITIN [Suspect]
     Active Substance: LORATADINE
     Indication: ROSACEA
  2. CLARITIN [Suspect]
     Active Substance: LORATADINE
     Indication: ERYTHEMA
     Dosage: 1 DF
     Route: 048

REACTIONS (3)
  - Product use issue [None]
  - Therapeutic response unexpected [None]
  - Drug ineffective for unapproved indication [None]
